FAERS Safety Report 14251607 (Version 2)
Quarter: 2018Q1

REPORT INFORMATION
  Report Type: Spontaneous
  Country: US (occurrence: US)
  Receive Date: 20171205
  Receipt Date: 20180312
  Transmission Date: 20180508
  Serious: Yes (Hospitalization, Other)
  Sender: FDA-Public Use
  Company Number: US-UCBSA-2017048372

PATIENT
  Age: 3 Year
  Sex: Male
  Weight: 12 kg

DRUGS (7)
  1. VIMPAT [Suspect]
     Active Substance: LACOSAMIDE
     Indication: SEIZURE
     Dosage: 0.5 ML, UNK
     Route: 048
     Dates: start: 201711, end: 2017
  2. VIMPAT [Suspect]
     Active Substance: LACOSAMIDE
     Dosage: 0.7 ML, UNK
     Route: 048
     Dates: start: 201711
  3. VIMPAT [Suspect]
     Active Substance: LACOSAMIDE
     Dosage: 0.5 ML
     Route: 048
     Dates: end: 201801
  4. KLONOPIN [Concomitant]
     Active Substance: CLONAZEPAM
     Indication: PRODUCT USED FOR UNKNOWN INDICATION
     Dosage: 1 ML, ONCE DAILY (QD)
  5. VIMPAT [Suspect]
     Active Substance: LACOSAMIDE
     Dosage: 0.75 ML
     Route: 048
  6. KEPPRA [Concomitant]
     Active Substance: LEVETIRACETAM
     Indication: PRODUCT USED FOR UNKNOWN INDICATION
     Dosage: 3.8 ML, 2X/DAY (BID)
  7. VIMPAT [Suspect]
     Active Substance: LACOSAMIDE
     Dosage: 0.6 ML, UNK
     Route: 048
     Dates: start: 201711, end: 201711

REACTIONS (12)
  - Generalised tonic-clonic seizure [Recovering/Resolving]
  - Diplopia [Not Recovered/Not Resolved]
  - Seizure [Not Recovered/Not Resolved]
  - Vocal cord dysfunction [Not Recovered/Not Resolved]
  - Staring [Not Recovered/Not Resolved]
  - Screaming [Not Recovered/Not Resolved]
  - Fear [Not Recovered/Not Resolved]
  - Vomiting [Recovered/Resolved]
  - Retching [Not Recovered/Not Resolved]
  - Weight decreased [Recovering/Resolving]
  - Decreased appetite [Not Recovered/Not Resolved]
  - Nausea [Recovered/Resolved]

NARRATIVE: CASE EVENT DATE: 201711
